FAERS Safety Report 8024672-8 (Version None)
Quarter: 2011Q4

REPORT INFORMATION
  Report Type: 
  Country: None (occurrence: None)
  Receive Date: 20111130
  Receipt Date: 20110527
  Transmission Date: 20120403
  Serious: Yes (Other)
  Sender: FDA-Public Use
  Company Number: PHHY2011US46960

PATIENT
  Sex: Female

DRUGS (2)
  1. TEKTURNA [Suspect]
  2. VALTURNA [Suspect]

REACTIONS (3)
  - HEARING IMPAIRED [None]
  - ANGIOEDEMA [None]
  - HYPERTENSION [None]
